FAERS Safety Report 20109099 (Version 1)
Quarter: 2021Q4

REPORT INFORMATION
  Report Type: Spontaneous
  Country: IN (occurrence: IN)
  Receive Date: 20211124
  Receipt Date: 20211124
  Transmission Date: 20220303
  Serious: Yes (Congenital Anomaly)
  Sender: FDA-Public Use
  Company Number: IN-UCBSA-2021054511

PATIENT

DRUGS (1)
  1. LEVETIRACETAM [Suspect]
     Active Substance: LEVETIRACETAM
     Indication: Epilepsy
     Dosage: UNK
     Route: 064

REACTIONS (4)
  - Congenital cardiovascular anomaly [Unknown]
  - Urinary tract malformation [Unknown]
  - Congenital musculoskeletal anomaly [Unknown]
  - Maternal exposure during pregnancy [Unknown]
